FAERS Safety Report 20645333 (Version 2)
Quarter: 2022Q1

REPORT INFORMATION
  Report Type: Spontaneous
  Country: IL (occurrence: IL)
  Receive Date: 20220328
  Receipt Date: 20220329
  Transmission Date: 20220424
  Serious: Yes (Life-Threatening)
  Sender: FDA-Public Use
  Company Number: IL-TEVA-2022-IL-2019112

PATIENT
  Age: 73 Year
  Sex: Female

DRUGS (1)
  1. PACLITAXEL [Suspect]
     Active Substance: PACLITAXEL
     Indication: Squamous cell carcinoma
     Route: 065
     Dates: start: 20220306

REACTIONS (4)
  - Back pain [Unknown]
  - Dyspnoea [Unknown]
  - Flushing [Unknown]
  - Oxygen saturation decreased [Unknown]
